FAERS Safety Report 4492235-7 (Version None)
Quarter: 2004Q4

REPORT INFORMATION
  Report Type: 
  Country: None (occurrence: None)
  Receive Date: 20041101
  Receipt Date: 20041020
  Transmission Date: 20050328
  Serious: Yes (Hospitalization)
  Sender: FDA-Public Use
  Company Number: K200401657

PATIENT
  Age: 33 Year
  Sex: Female

DRUGS (1)
  1. BREVITAL SODIUM INJ [Suspect]
     Indication: ELECTROCONVULSIVE THERAPY
     Dosage: 100 MG, SINGLE, INTRAVENOUS
     Route: 042
     Dates: start: 20041020, end: 20041020

REACTIONS (1)
  - GRAND MAL CONVULSION [None]
